FAERS Safety Report 21073493 (Version 2)
Quarter: 2022Q3

REPORT INFORMATION
  Report Type: Spontaneous
  Country: US (occurrence: US)
  Receive Date: 20220713
  Receipt Date: 20220714
  Transmission Date: 20221027
  Serious: No
  Sender: FDA-Public Use
  Company Number: US-GLAXOSMITHKLINE-USCH2022023945

PATIENT
  Age: 66 Year

DRUGS (1)
  1. ABREVA [Suspect]
     Active Substance: DOCOSANOL
     Indication: Oral herpes
     Dosage: UNK
     Dates: start: 20220706

REACTIONS (3)
  - Oral herpes [Recovered/Resolved]
  - Condition aggravated [Recovered/Resolved]
  - Urticaria [Unknown]

NARRATIVE: CASE EVENT DATE: 20220707
